FAERS Safety Report 25513914 (Version 1)
Quarter: 2025Q3

REPORT INFORMATION
  Report Type: Spontaneous
  Country: US (occurrence: US)
  Receive Date: 20250703
  Receipt Date: 20250703
  Transmission Date: 20251021
  Serious: No
  Sender: SANOFI AVENTIS
  Company Number: US-SA-2025SA187833

PATIENT
  Sex: Female
  Weight: 66.36 kg

DRUGS (17)
  1. DUPIXENT [Suspect]
     Active Substance: DUPILUMAB
     Indication: Dermatitis atopic
     Dosage: 300 MG, QOW
     Route: 058
  2. AUSTEDO [Concomitant]
     Active Substance: DEUTETRABENAZINE
  3. DEVICE [Concomitant]
     Active Substance: DEVICE
  4. PROLIA [Concomitant]
     Active Substance: DENOSUMAB
  5. OPZELURA [Concomitant]
     Active Substance: RUXOLITINIB PHOSPHATE
  6. TRAZODONE HYDROCHLORIDE [Concomitant]
     Active Substance: TRAZODONE HYDROCHLORIDE
  7. ONDANSETRON HYDROCHLORIDE [Concomitant]
     Active Substance: ONDANSETRON HYDROCHLORIDE
  8. ARIPIPRAZOLE [Concomitant]
     Active Substance: ARIPIPRAZOLE
  9. ZOLPIDEM TARTRATE [Concomitant]
     Active Substance: ZOLPIDEM TARTRATE
  10. LINZESS [Concomitant]
     Active Substance: LINACLOTIDE
  11. METHYLPHENIDATE [Concomitant]
     Active Substance: METHYLPHENIDATE
  12. LAMOTRIGINE [Concomitant]
     Active Substance: LAMOTRIGINE
  13. NALTREXONE HYDROCHLORIDE [Concomitant]
     Active Substance: NALTREXONE HYDROCHLORIDE
  14. FAMOTIDINE [Concomitant]
     Active Substance: FAMOTIDINE
  15. DICYCLOMINE HYDROCHLORIDE [Concomitant]
     Active Substance: DICYCLOMINE HYDROCHLORIDE
  16. LYRICA [Concomitant]
     Active Substance: PREGABALIN
  17. CELEBREX [Concomitant]
     Active Substance: CELECOXIB

REACTIONS (3)
  - Peripheral swelling [Unknown]
  - Stress [Unknown]
  - Rash [Unknown]
